FAERS Safety Report 14586003 (Version 1)
Quarter: 2018Q1

REPORT INFORMATION
  Report Type: Spontaneous
  Country: US (occurrence: US)
  Receive Date: 20180301
  Receipt Date: 20180301
  Transmission Date: 20180509
  Serious: No
  Sender: FDA-Public Use
  Company Number: US-BAYER-2018-035598

PATIENT
  Age: 84 Year
  Sex: Female
  Weight: 66 kg

DRUGS (18)
  1. BAYER ASPIRIN [Concomitant]
     Active Substance: ASPIRIN
  2. VITAMIN D3 [Concomitant]
     Active Substance: CHOLECALCIFEROL
  3. MIRALAX [Suspect]
     Active Substance: POLYETHYLENE GLYCOL 3350
     Indication: GASTROINTESTINAL DISORDER
     Dosage: 1 DF, QD
     Route: 048
     Dates: start: 201801, end: 201801
  4. VITAMIN C [ASCORBIC ACID] [Concomitant]
  5. METOPROLOL. [Concomitant]
     Active Substance: METOPROLOL
  6. LOSARTAN POTASSIUM. [Concomitant]
     Active Substance: LOSARTAN POTASSIUM
  7. CENTRUM SILVER [Concomitant]
     Active Substance: MINERALS\VITAMINS
  8. PEPCID AC [Concomitant]
     Active Substance: FAMOTIDINE
     Dosage: 20 MG, UNK
  9. ZOLEDRONIC ACID [Concomitant]
     Active Substance: ZOLEDRONIC ACID
  10. ROSUVASTATIN. [Concomitant]
     Active Substance: ROSUVASTATIN
  11. NIFEDIPINE. [Concomitant]
     Active Substance: NIFEDIPINE
  12. MIRALAX [Suspect]
     Active Substance: POLYETHYLENE GLYCOL 3350
     Indication: GASTROINTESTINAL DISORDER
     Dosage: 1 DF, QD
     Route: 048
     Dates: start: 201802
  13. OCUVITE PRESERVISION [Concomitant]
  14. GLUCOSAMINE W/CHONDROITIN SULFATE [Concomitant]
     Active Substance: CHONDROITIN SULFATE (BOVINE)\GLUCOSAMINE SULFATE
  15. COQ10 [Concomitant]
     Active Substance: UBIDECARENONE
  16. MONTELUKAST [Concomitant]
     Active Substance: MONTELUKAST SODIUM
  17. ISOSORBIDE. [Concomitant]
     Active Substance: ISOSORBIDE
  18. MIRALAX [Suspect]
     Active Substance: POLYETHYLENE GLYCOL 3350
     Indication: CONSTIPATION
     Dosage: 1 DF, QD
     Route: 048
     Dates: start: 201801, end: 201802

REACTIONS (3)
  - Product odour abnormal [None]
  - Poor quality drug administered [Unknown]
  - Product taste abnormal [None]

NARRATIVE: CASE EVENT DATE: 201801
